FAERS Safety Report 11103108 (Version 1)
Quarter: 2015Q2

REPORT INFORMATION
  Report Type: Spontaneous
  Country: US (occurrence: None)
  Receive Date: 20150508
  Receipt Date: 20150508
  Transmission Date: 20150821
  Serious: Yes (Life-Threatening, Hospitalization)
  Sender: FDA-Public Use
  Company Number: None

PATIENT
  Age: 30 Year
  Sex: Female
  Weight: 130 kg

DRUGS (2)
  1. CYCLOPHOSPHAMIDE. [Suspect]
     Active Substance: CYCLOPHOSPHAMIDE
     Indication: NERVOUS SYSTEM DISORDER
     Dosage: 75 MG, EVERY DAY, PO
     Route: 048
     Dates: start: 20060223, end: 20110526
  2. CYCLOPHOSPHAMIDE. [Suspect]
     Active Substance: CYCLOPHOSPHAMIDE
     Indication: VASCULITIS
     Dosage: 75 MG, EVERY DAY, PO
     Route: 048
     Dates: start: 20060223, end: 20110526

REACTIONS (3)
  - Cystitis haemorrhagic [None]
  - Urinary tract infection [None]
  - Haemorrhage [None]

NARRATIVE: CASE EVENT DATE: 20110524
